FAERS Safety Report 25463412 (Version 1)
Quarter: 2025Q2

REPORT INFORMATION
  Report Type: Spontaneous
  Country: US (occurrence: US)
  Receive Date: 20250620
  Receipt Date: 20250620
  Transmission Date: 20250717
  Serious: Yes (Other)
  Sender: ALEXION PHARMACEUTICALS
  Company Number: US-ASTRAZENECA-202506USA014706US

PATIENT

DRUGS (3)
  1. FASLODEX [Suspect]
     Active Substance: FULVESTRANT
     Route: 065
  2. FASLODEX [Suspect]
     Active Substance: FULVESTRANT
  3. IBRANCE [Suspect]
     Active Substance: PALBOCICLIB

REACTIONS (10)
  - Neuropathy peripheral [Unknown]
  - Chemotherapy [Unknown]
  - Alopecia [Unknown]
  - Fatigue [Unknown]
  - Oral pain [Unknown]
  - Hyperaesthesia teeth [Unknown]
  - Foot fracture [Unknown]
  - Peripheral swelling [Unknown]
  - Lacrimation increased [Unknown]
  - Infection [Unknown]
